FAERS Safety Report 6169414-6 (Version None)
Quarter: 2009Q2

REPORT INFORMATION
  Report Type: 
  Country: None (occurrence: None)
  Receive Date: 20090424
  Receipt Date: 20090123
  Transmission Date: 20091009
  Serious: No
  Sender: FDA-Public Use
  Company Number: ALL1-2008-03147

PATIENT
  Age: 56 Year
  Sex: Female
  Weight: 59 kg

DRUGS (5)
  1. VYVANSE [Suspect]
     Indication: ATTENTION DEFICIT/HYPERACTIVITY DISORDER
     Dosage: 20 MG, 1X/DAY:QD, ORAL ; 1X/DAY:QD, ORAL
     Route: 048
     Dates: start: 20081024, end: 20081024
  2. VYVANSE [Suspect]
     Indication: ATTENTION DEFICIT/HYPERACTIVITY DISORDER
     Dosage: 20 MG, 1X/DAY:QD, ORAL ; 1X/DAY:QD, ORAL
     Route: 048
     Dates: start: 20081201
  3. SYNTHROID [Concomitant]
  4. HYDROXYZINE [Concomitant]
  5. ATIVAN [Concomitant]

REACTIONS (4)
  - DYSPNOEA [None]
  - GLOSSODYNIA [None]
  - HEART RATE INCREASED [None]
  - SWOLLEN TONGUE [None]
